FAERS Safety Report 13741285 (Version 3)
Quarter: 2017Q4

REPORT INFORMATION
  Report Type: Spontaneous
  Country: US (occurrence: US)
  Receive Date: 20170711
  Receipt Date: 20171205
  Transmission Date: 20180320
  Serious: Yes (Hospitalization, Other)
  Sender: FDA-Public Use
  Company Number: US-ASTELLAS-2017US026865

PATIENT
  Age: 88 Year
  Sex: Male

DRUGS (1)
  1. XTANDI [Suspect]
     Active Substance: ENZALUTAMIDE
     Indication: PROSTATE CANCER
     Route: 048
     Dates: start: 20170404

REACTIONS (9)
  - Concussion [Unknown]
  - Fall [Unknown]
  - Constipation [Unknown]
  - Drug ineffective [Unknown]
  - Fall [Unknown]
  - Visual impairment [Unknown]
  - Memory impairment [Unknown]
  - Vision blurred [Unknown]
  - Confusional state [Unknown]

NARRATIVE: CASE EVENT DATE: 201709
